FAERS Safety Report 24383940 (Version 2)
Quarter: 2025Q1

REPORT INFORMATION
  Report Type: Spontaneous
  Country: US (occurrence: US)
  Receive Date: 20241001
  Receipt Date: 20250120
  Transmission Date: 20250408
  Serious: Yes (Other)
  Sender: SANOFI AVENTIS
  Company Number: US-SA-2024SA274445

PATIENT
  Age: 44 Year
  Sex: Female

DRUGS (4)
  1. DUPIXENT [Suspect]
     Active Substance: DUPILUMAB
     Indication: Asthma
     Dosage: 300 MG, QOW
     Route: 058
     Dates: start: 202308, end: 20241213
  2. HUMAN IMMUNOGLOBULIN G [Concomitant]
     Active Substance: HUMAN IMMUNOGLOBULIN G
  3. LMX 4 [Concomitant]
  4. XEMBIFY [Concomitant]
     Active Substance: HUMAN IMMUNOGLOBULIN G

REACTIONS (10)
  - Knee arthroplasty [Unknown]
  - Pain [Unknown]
  - Swelling [Unknown]
  - Nasal discomfort [Unknown]
  - Condition aggravated [Unknown]
  - Pruritus [Unknown]
  - Sinusitis [Unknown]
  - Condition aggravated [Unknown]
  - Nasopharyngitis [Unknown]
  - Condition aggravated [Unknown]

NARRATIVE: CASE EVENT DATE: 20241223
